FAERS Safety Report 4774629-5 (Version None)
Quarter: 2005Q3

REPORT INFORMATION
  Report Type: 
  Country: None (occurrence: None)
  Receive Date: 20050919
  Receipt Date: 20050907
  Transmission Date: 20060218
  Serious: Yes (Disabling)
  Sender: FDA-Public Use
  Company Number: 2005124496

PATIENT
  Sex: Male

DRUGS (10)
  1. LYRICA [Suspect]
     Indication: NEUROPATHIC PAIN
     Dosage: 150 MG (75 MG, 2 IN 1 D), ORAL
     Route: 048
     Dates: start: 20050707, end: 20050825
  2. DETRUSITOL (TOLERODINE L-TARTRATE) [Concomitant]
  3. SELECTOL (CELIPROLOL HYDROCHLORIDE) [Concomitant]
  4. OMNIC (TAMSULOSIN HYDROCHLORIDE) [Concomitant]
  5. GEFINA (FINASTERIDE) [Concomitant]
  6. COZAAR [Concomitant]
  7. LEVOLAC (LACTULOSE) [Concomitant]
  8. PRIMASPAN (ACETYLSALICYLIC ACID) [Concomitant]
  9. ORMOX (ISOSORBIDE MONONITRATE) [Concomitant]
  10. LESCOL [Concomitant]

REACTIONS (4)
  - ACTIVITIES OF DAILY LIVING IMPAIRED [None]
  - ASTHENIA [None]
  - GENERAL PHYSICAL HEALTH DETERIORATION [None]
  - WEIGHT INCREASED [None]
